FAERS Safety Report 4907662-0 (Version None)
Quarter: 2006Q1

REPORT INFORMATION
  Report Type: 
  Country: None (occurrence: None)
  Receive Date: 20060210
  Receipt Date: 20050216
  Transmission Date: 20060701
  Serious: Yes (Other)
  Sender: FDA-Public Use
  Company Number: GB-MERCK-0502GBR00173

PATIENT
  Age: 57 Year
  Sex: Female

DRUGS (1)
  1. COZAAR [Suspect]
     Indication: HYPERTENSION
     Route: 048
     Dates: start: 20000101

REACTIONS (2)
  - BONE DISORDER [None]
  - GINGIVAL DISORDER [None]
